FAERS Safety Report 5178660-X (Version None)
Quarter: 2006Q4

REPORT INFORMATION
  Report Type: 
  Country: None (occurrence: None)
  Receive Date: 20061208
  Receipt Date: 20061122
  Transmission Date: 20070319
  Serious: Yes (Other)
  Sender: FDA-Public Use
  Company Number: BR-2005-027126

PATIENT
  Age: 39 Year
  Sex: Female

DRUGS (1)
  1. BETAFERON (INTERFERON BETA - 1B) INJECTION, 250UG [Suspect]
     Indication: MULTIPLE SCLEROSIS
     Dosage: 8 MIU, SUBCUTANEOUS
     Route: 058
     Dates: start: 20010801

REACTIONS (10)
  - CONSTIPATION [None]
  - DIARRHOEA [None]
  - ENDOMETRIOSIS [None]
  - HEPATOMEGALY [None]
  - INAPPROPRIATE SCHEDULE OF DRUG ADMINISTRATION [None]
  - INJECTION SITE ANAESTHESIA [None]
  - INJECTION SITE MASS [None]
  - INJECTION SITE PAIN [None]
  - PANIC DISORDER [None]
  - PELVIC PAIN [None]
